FAERS Safety Report 8904601 (Version 1)
Quarter: 2012Q4

REPORT INFORMATION
  Report Type: 
  Country: US (occurrence: US)
  Receive Date: 20121109
  Receipt Date: 20121109
  Transmission Date: 20130627
  Serious: Yes (Other)
  Sender: FDA-Public Use
  Company Number: US-BAYER-2012-117325

PATIENT
  Age: 70 Year
  Sex: Female

DRUGS (1)
  1. BAYER ADVANCED ASPIRIN EXTRA STRENGTH [Suspect]
     Indication: HEADACHE
     Dosage: 1 DF, UNK
     Route: 048
     Dates: start: 2011, end: 201209

REACTIONS (3)
  - Choking [None]
  - Foreign body [Recovered/Resolved]
  - Incorrect drug administration duration [None]
